FAERS Safety Report 8804672 (Version 1)
Quarter: 2012Q4

REPORT INFORMATION
  Report Type: 
  Country: US (occurrence: US)
  Receive Date: 20120922
  Receipt Date: 20120922
  Transmission Date: 20130627
  Serious: No
  Sender: FDA-Public Use
  Company Number: US-TEVA-357647USA

PATIENT
  Sex: Female

DRUGS (2)
  1. COPAXONE [Suspect]
     Indication: MULTIPLE SCLEROSIS
     Dosage: 20 Milligram Daily;
     Route: 058
  2. TOPAMAX [Concomitant]

REACTIONS (1)
  - Blood thyroid stimulating hormone decreased [Unknown]
